FAERS Safety Report 18436415 (Version 1)
Quarter: 2020Q4

REPORT INFORMATION
  Report Type: Spontaneous
  Country: CN (occurrence: CN)
  Receive Date: 20201028
  Receipt Date: 20201028
  Transmission Date: 20210114
  Serious: Yes (Other)
  Sender: FDA-Public Use
  Company Number: CN-PFIZER INC-2020413517

PATIENT
  Age: 28 Year
  Sex: Male
  Weight: 63 kg

DRUGS (3)
  1. HARNAL [Suspect]
     Active Substance: TAMSULOSIN HYDROCHLORIDE
     Indication: NEPHROLITHIASIS
     Dosage: 1 DF, 1X/DAY (1 CAPSULE, ONCE A DAY)
     Route: 048
     Dates: start: 20201019, end: 20201019
  2. CELECOXIB. [Suspect]
     Active Substance: CELECOXIB
     Indication: NEPHROLITHIASIS
     Dosage: 1 DF, 1X/DAY (1 CAPSULE, ONCE A DAY)
     Route: 048
     Dates: start: 20201019, end: 20201019
  3. AVELOX [Suspect]
     Active Substance: MOXIFLOXACIN HYDROCHLORIDE
     Indication: NEPHROLITHIASIS
     Dosage: 1 DF, 1X/DAY (1 TABLET, ONCE A DAY)
     Route: 048
     Dates: start: 20201019, end: 20201019

REACTIONS (3)
  - Rubella [Recovering/Resolving]
  - Off label use [Unknown]
  - Product use in unapproved indication [Unknown]

NARRATIVE: CASE EVENT DATE: 20201019
